FAERS Safety Report 5673009-8 (Version None)
Quarter: 2008Q1

REPORT INFORMATION
  Report Type: 
  Country: None (occurrence: None)
  Receive Date: 20080319
  Receipt Date: 20080313
  Transmission Date: 20080703
  Serious: Yes (Hospitalization)
  Sender: FDA-Public Use
  Company Number: B0513009A

PATIENT
  Age: 69 Year
  Sex: Female

DRUGS (4)
  1. LAMICTAL [Suspect]
     Route: 048
     Dates: start: 19990101, end: 20070507
  2. ERGENYL [Suspect]
     Route: 048
     Dates: start: 19960101, end: 20070507
  3. CITALOPRAM HYDROBROMIDE [Concomitant]
     Dosage: 20MG PER DAY
  4. UNKNOWN [Concomitant]
     Dosage: 5MG PER DAY

REACTIONS (9)
  - COGNITIVE DISORDER [None]
  - CONDITION AGGRAVATED [None]
  - CONVULSION [None]
  - DEMENTIA [None]
  - DEMENTIA ALZHEIMER'S TYPE [None]
  - DRUG INEFFECTIVE [None]
  - MEMORY IMPAIRMENT [None]
  - MUSCULOSKELETAL STIFFNESS [None]
  - TREMOR [None]
